FAERS Safety Report 5583153-1 (Version None)
Quarter: 2008Q1

REPORT INFORMATION
  Report Type: 
  Country: None (occurrence: None)
  Receive Date: 20080103
  Receipt Date: 20080103
  Transmission Date: 20080703
  Serious: Yes (Life-Threatening, Hospitalization)
  Sender: FDA-Public Use
  Company Number: None

PATIENT
  Age: 81 Year
  Sex: Male

DRUGS (1)
  1. ENOXAPARIN    125MG [Suspect]
     Indication: DEEP VEIN THROMBOSIS
     Dosage: 125MG  BID  SQ
     Route: 058

REACTIONS (11)
  - ABDOMINAL PAIN [None]
  - ANORECTAL DISORDER [None]
  - ECCHYMOSIS [None]
  - GENERAL PHYSICAL HEALTH DETERIORATION [None]
  - HAEMATOMA [None]
  - HYPOTENSION [None]
  - PELVIC HAEMATOMA [None]
  - PNEUMONIA ASPIRATION [None]
  - RENAL FAILURE ACUTE [None]
  - RESPIRATORY FAILURE [None]
  - SEPTIC SHOCK [None]
